FAERS Safety Report 14014798 (Version 1)
Quarter: 2017Q3

REPORT INFORMATION
  Report Type: Spontaneous
  Country: CA (occurrence: None)
  Receive Date: 20170927
  Receipt Date: 20170927
  Transmission Date: 20171128
  Serious: Yes (Hospitalization)
  Sender: FDA-Public Use
  Company Number: None

PATIENT
  Age: 62 Year
  Sex: Female
  Weight: 93.6 kg

DRUGS (2)
  1. CYCLOPHOSPHAMIDE. [Suspect]
     Active Substance: CYCLOPHOSPHAMIDE
     Dates: end: 20170825
  2. DOXORUBICIN HYDROCHLORIDE. [Suspect]
     Active Substance: DOXORUBICIN HYDROCHLORIDE
     Dates: end: 20170825

REACTIONS (7)
  - Staphylococcus test positive [None]
  - Chills [None]
  - Catheter culture positive [None]
  - Fatigue [None]
  - Pyrexia [None]
  - Asthenia [None]
  - Device related sepsis [None]

NARRATIVE: CASE EVENT DATE: 20170909
